FAERS Safety Report 5404266-0 (Version None)
Quarter: 2007Q3

REPORT INFORMATION
  Report Type: 
  Country: None (occurrence: None)
  Receive Date: 20070731
  Receipt Date: 20070716
  Transmission Date: 20080115
  Serious: Yes (Death)
  Sender: FDA-Public Use
  Company Number: 2007001194

PATIENT
  Age: 76 Year
  Sex: Male

DRUGS (7)
  1. ERLOTINIB (TABLET) [Suspect]
     Indication: NON-SMALL CELL LUNG CANCER
     Dosage: ORAL
     Route: 048
     Dates: start: 20070411
  2. BEVACIZUMAB [Suspect]
     Indication: NON-SMALL CELL LUNG CANCER
     Dosage: 15 MG/KG
     Dates: start: 20061108, end: 20070228
  3. CARBOPLATIN [Suspect]
     Indication: NON-SMALL CELL LUNG CANCER
     Dosage: 6 AUC
  4. PACLITAXEL [Suspect]
     Indication: NON-SMALL CELL LUNG CANCER
     Dosage: 200 MG/MM2
  5. MORPHINE [Concomitant]
  6. TYLENOL W/ CODEINE NO. 3 [Concomitant]
  7. PREDNISONE TAB [Concomitant]

REACTIONS (4)
  - BRONCHOPLEURAL FISTULA [None]
  - LOSS OF CONSCIOUSNESS [None]
  - PULMONARY HAEMORRHAGE [None]
  - REFUSAL OF TREATMENT BY PATIENT [None]
